FAERS Safety Report 7601932-3 (Version None)
Quarter: 2011Q3

REPORT INFORMATION
  Report Type: 
  Country: None (occurrence: None)
  Receive Date: 20110711
  Receipt Date: 20110708
  Transmission Date: 20111222
  Serious: No
  Sender: FDA-Public Use
  Company Number: US-PFIZER INC-2011154643

PATIENT
  Sex: Male
  Weight: 107 kg

DRUGS (2)
  1. CARBAMAZEPINE [Concomitant]
     Indication: CONVULSION
     Dosage: UNK
  2. PHENYTOIN [Suspect]
     Indication: CONVULSION
     Dosage: UNK
     Route: 048

REACTIONS (2)
  - RASH [None]
  - HYPERSENSITIVITY [None]
